FAERS Safety Report 6689582-7 (Version None)
Quarter: 2010Q2

REPORT INFORMATION
  Report Type: 
  Country: None (occurrence: None)
  Receive Date: 20100421
  Receipt Date: 20100413
  Transmission Date: 20101027
  Serious: No
  Sender: FDA-Public Use
  Company Number: US-BIOGENIDEC-2010BI012818

PATIENT
  Age: 48 Year
  Sex: Female

DRUGS (1)
  1. TYSABRI [Suspect]
     Indication: MULTIPLE SCLEROSIS
     Route: 042
     Dates: start: 20070725

REACTIONS (11)
  - BRONCHITIS [None]
  - COUGH [None]
  - DECREASED APPETITE [None]
  - EAR CONGESTION [None]
  - EAR PAIN [None]
  - INFLUENZA [None]
  - INSOMNIA [None]
  - NASOPHARYNGITIS [None]
  - OROPHARYNGEAL PAIN [None]
  - RHINORRHOEA [None]
  - THROAT IRRITATION [None]
